FAERS Safety Report 10542352 (Version 1)
Quarter: 2014Q4

REPORT INFORMATION
  Report Type: Spontaneous
  Country: US (occurrence: US)
  Receive Date: 20141025
  Receipt Date: 20141025
  Transmission Date: 20150529
  Serious: No
  Sender: FDA-Public Use
  Company Number: US-009507513-1410USA012474

PATIENT

DRUGS (7)
  1. MEDROL [Concomitant]
     Active Substance: METHYLPREDNISOLONE
  2. VICKS NYQUIL (OLD FORMULA) [Concomitant]
  3. FLONASE [Concomitant]
     Active Substance: FLUTICASONE PROPIONATE
  4. MUCINEX [Concomitant]
     Active Substance: GUAIFENESIN
  5. ASCORBIC ACID. [Concomitant]
     Active Substance: ASCORBIC ACID
  6. SINGULAIR [Suspect]
     Active Substance: MONTELUKAST SODIUM
     Dosage: UNK
  7. ALLEGRA [Concomitant]
     Active Substance: FEXOFENADINE HYDROCHLORIDE

REACTIONS (2)
  - Liver disorder [Not Recovered/Not Resolved]
  - Crying [Not Recovered/Not Resolved]
